FAERS Safety Report 5506100-7 (Version None)
Quarter: 2007Q4

REPORT INFORMATION
  Report Type: 
  Country: None (occurrence: None)
  Receive Date: 20071105
  Receipt Date: 20071029
  Transmission Date: 20080405
  Serious: Yes (Other)
  Sender: FDA-Public Use
  Company Number: DE-BRISTOL-MYERS SQUIBB COMPANY-13965694

PATIENT
  Age: 67 Year
  Sex: Male

DRUGS (1)
  1. COAPROVEL TABS 300MG/12.5MG [Suspect]
     Indication: AORTIC VALVE INCOMPETENCE
     Dosage: 1 DOSAGE FORM = 300MG/12.5MG
     Route: 048
     Dates: start: 20020701

REACTIONS (2)
  - DYSGEUSIA [None]
  - WEIGHT DECREASED [None]
